FAERS Safety Report 7288247-0 (Version None)
Quarter: 2011Q1

REPORT INFORMATION
  Report Type: 
  Country: None (occurrence: None)
  Receive Date: 20110211
  Receipt Date: 20110203
  Transmission Date: 20110831
  Serious: Yes (Hospitalization)
  Sender: FDA-Public Use
  Company Number: AU-ROCHE-738702

PATIENT
  Sex: Male
  Weight: 98 kg

DRUGS (2)
  1. TEGRETOL [Concomitant]
     Dosage: DOSE : 100, FREQUENCY : BD
  2. AVASTIN [Suspect]
     Indication: GLIOMA
     Route: 042
     Dates: start: 20100921, end: 20101101

REACTIONS (7)
  - CEREBRAL HAEMORRHAGE [None]
  - PHOTOPHOBIA [None]
  - MYALGIA [None]
  - MIGRAINE [None]
  - INTRAVENTRICULAR HAEMORRHAGE [None]
  - DYSPHONIA [None]
  - RESPIRATORY DISORDER [None]
